FAERS Safety Report 12783946 (Version 1)
Quarter: 2016Q3

REPORT INFORMATION
  Report Type: Spontaneous
  Country: US (occurrence: US)
  Receive Date: 20160927
  Receipt Date: 20160927
  Transmission Date: 20161109
  Serious: Yes (Other)
  Sender: FDA-Public Use
  Company Number: US-BAYER-2016-185830

PATIENT
  Sex: Female

DRUGS (23)
  1. ACETAMINOPHEN W/HYDROCODONE [Concomitant]
     Active Substance: ACETAMINOPHEN\HYDROCODONE
     Indication: PAIN
     Dosage: 325 MG, 2 TABS TID
  2. LECITHIN [Concomitant]
     Active Substance: LECITHIN
     Dosage: 500 MG, BID
  3. FISH OIL [Concomitant]
     Active Substance: FISH OIL
     Dosage: 1000 MG, BID
  4. ENALAPRIL MALEATE. [Concomitant]
     Active Substance: ENALAPRIL MALEATE
     Indication: BLOOD PRESSURE ABNORMAL
     Dosage: 2.5 MG, QD A.M.
  5. ESTRADIOL [ESTRADIOL] [Concomitant]
     Indication: BONE DENSITY ABNORMAL
     Dosage: 1 MG, QOD
  6. AMARYL [Concomitant]
     Active Substance: GLIMEPIRIDE
     Indication: DIABETES MELLITUS
     Dosage: 2 MG, 1/2 AM - 1/2 PM
  7. TRAMADOL. [Concomitant]
     Active Substance: TRAMADOL
     Indication: BREAKTHROUGH PAIN
     Dosage: 50 MG, Q72HR AS NEEDED
  8. BAYER GENUINE ASPIRIN [Suspect]
     Active Substance: ASPIRIN
     Indication: CAROTID ARTERY OCCLUSION
     Dosage: 81 MG, BID
     Route: 065
     Dates: start: 20160721
  9. OXYGEN. [Concomitant]
     Active Substance: OXYGEN
     Dosage: 4 L 24-7
     Dates: start: 20070224
  10. REVATIO [Concomitant]
     Active Substance: SILDENAFIL CITRATE
     Indication: PULMONARY ARTERIAL HYPERTENSION
     Dosage: 20 MG, TID
  11. RANITIDINE. [Concomitant]
     Active Substance: RANITIDINE
     Indication: GASTROOESOPHAGEAL REFLUX DISEASE
     Dosage: 150 MG, BID
  12. HYDROCHLOROTHIAZIDE. [Concomitant]
     Active Substance: HYDROCHLOROTHIAZIDE
     Dosage: 12.5 MG, QD
  13. SUPER B COMPLEX WITH VITAMIN C [Concomitant]
     Dosage: UNK UNK, BID
  14. ALPRAZOLAM. [Concomitant]
     Active Substance: ALPRAZOLAM
     Indication: PAIN
     Dosage: UNK, QID
  15. FUROSEMIDE. [Concomitant]
     Active Substance: FUROSEMIDE
     Indication: FLUID RETENTION
     Dosage: 20 MG, BID
  16. AMITRIPTYLINE HCL [Concomitant]
     Active Substance: AMITRIPTYLINE
     Indication: NEUROPATHY PERIPHERAL
     Dosage: 100 MG, HS
  17. GLUCOPHAGE [Concomitant]
     Active Substance: METFORMIN HYDROCHLORIDE
     Indication: DIABETES MELLITUS
     Dosage: 1000 MG, BID
  18. COENZYME Q10 [Concomitant]
     Active Substance: UBIDECARENONE
     Dosage: 100 MG, QD
  19. SYNTHROID [Concomitant]
     Active Substance: LEVOTHYROXINE SODIUM
     Indication: THYROID DISORDER
     Dosage: 137 MCG/24HR, QD
  20. ACETAMINOPHEN W/HYDROCODONE [Concomitant]
     Active Substance: ACETAMINOPHEN\HYDROCODONE
     Indication: PAIN
     Dosage: 10-235 TAB, TID
  21. OMEGA 3 [Concomitant]
     Active Substance: OMEGA-3 FATTY ACIDS
     Dosage: 300 MG, BID
  22. ENALAPRIL MALEATE. [Concomitant]
     Active Substance: ENALAPRIL MALEATE
     Indication: BLOOD PRESSURE ABNORMAL
     Dosage: 10 MG, HS
  23. CALCIUM WITH VITAMIN D [Concomitant]
     Active Substance: CALCIUM\VITAMIN D
     Dosage: 1000 MG, QD

REACTIONS (2)
  - Drug hypersensitivity [Unknown]
  - Haemorrhage [None]
